FAERS Safety Report 10037442 (Version 2)
Quarter: 2014Q2

REPORT INFORMATION
  Report Type: Spontaneous
  Country: FR (occurrence: FR)
  Receive Date: 20140326
  Receipt Date: 20140409
  Transmission Date: 20141212
  Serious: Yes (Other)
  Sender: FDA-Public Use
  Company Number: FR-RANBAXY-2014RR-79534

PATIENT
  Age: 16 Year
  Sex: Male

DRUGS (15)
  1. RISPERIDONE [Suspect]
     Indication: SCHIZOPHRENIA
     Dosage: 1 MG/DAY
     Route: 048
     Dates: start: 2009
  2. CLONAZEPAM [Suspect]
     Indication: SCHIZOPHRENIA
     Dosage: 0.05 MG/KG/D
     Route: 048
     Dates: start: 2009
  3. CLONAZEPAM [Concomitant]
     Indication: SCHIZOPHRENIA
     Dosage: 0.05 MG/KG/D
     Route: 042
     Dates: start: 2009
  4. CLONAZEPAM [Suspect]
     Indication: SCHIZOPHRENIA
     Dosage: 0.1 MG/KG, DAILY
     Route: 042
  5. CLONAZEPAM [Suspect]
     Indication: SCHIZOPHRENIA
     Dosage: UNK MG/KG/D
     Route: 042
  6. LORAZEPAM [Suspect]
     Indication: SCHIZOPHRENIA
     Dosage: 5 MG/DAY
     Route: 042
  7. CARBAMAZEPINE [Suspect]
     Indication: SCHIZOPHRENIA
     Dosage: 10 MG/KG, DAILY
     Route: 048
  8. LITHIUM [Suspect]
     Indication: SCHIZOPHRENIA
     Dosage: 250 MG/DAY
     Route: 048
  9. OLANZAPINE [Suspect]
     Indication: SCHIZOPHRENIA
     Dosage: 5 MG/DAY
     Route: 065
  10. OLANZAPINE [Suspect]
     Indication: SCHIZOPHRENIA
     Dosage: INCREASED BY 5 MG/DAY UNTIL IT REACHES 20 MG/DAY IN TEN DAYS
     Route: 065
  11. OLANZAPINE [Suspect]
     Indication: SCHIZOPHRENIA
     Dosage: REDUCED BY 5 MG IN ORDER TO BE STOPPED WITHIN 15 DAYS
     Route: 065
  12. CLOZAPINE [Suspect]
     Indication: SCHIZOPHRENIA
     Dosage: 25 MG/DAY
     Route: 065
  13. CLOZAPINE [Suspect]
     Indication: SCHIZOPHRENIA
     Dosage: INCREASED BY 25 MG PER WEEK UP TO 250 MG/DAY
     Route: 065
  14. CLOZAPINE [Suspect]
     Indication: SCHIZOPHRENIA
     Dosage: 175 MG/DAY
     Route: 065
  15. CLOZAPINE [Suspect]
     Indication: SCHIZOPHRENIA
     Dosage: 250 MG/DAY
     Route: 065

REACTIONS (6)
  - Catatonia [Recovered/Resolved]
  - Blood creatine phosphokinase increased [Recovering/Resolving]
  - Fatigue [Recovered/Resolved]
  - Sedation [Recovered/Resolved]
  - Parkinsonism [Recovered/Resolved]
  - Weight increased [Unknown]
